FAERS Safety Report 7778956-9 (Version None)
Quarter: 2011Q3

REPORT INFORMATION
  Report Type: 
  Country: None (occurrence: None)
  Receive Date: 20110926
  Receipt Date: 20110921
  Transmission Date: 20111222
  Serious: Yes (Death)
  Sender: FDA-Public Use
  Company Number: AU-B.I. PHARMACEUTICALS,INC./RIDGEFIELD-2011-AU-01401AU

PATIENT
  Sex: Female

DRUGS (11)
  1. CRESTOR [Concomitant]
     Dosage: 20 MG
  2. NOTEN [Concomitant]
     Dosage: 100 MG
  3. SEREPAX [Concomitant]
  4. PRADAXA [Suspect]
     Indication: ATRIAL FIBRILLATION
     Dosage: 220 MG
     Dates: start: 20110815, end: 20110914
  5. FOSAMAX PLUS D-CAL [Concomitant]
  6. NEXIUM [Concomitant]
  7. ZAN EXTRA [Concomitant]
  8. PHYSIOTENS [Concomitant]
     Dosage: 0.2 MG
  9. MIRTAZAPINE [Concomitant]
  10. KARVEA [Concomitant]
     Dosage: 300 MG
  11. SYMBICORT [Concomitant]

REACTIONS (3)
  - DEATH [None]
  - NAUSEA [None]
  - LETHARGY [None]
